FAERS Safety Report 18888873 (Version 1)
Quarter: 2021Q1

REPORT INFORMATION
  Report Type: Spontaneous
  Country: US (occurrence: US)
  Receive Date: 20210212
  Receipt Date: 20210212
  Transmission Date: 20210420
  Serious: No
  Sender: FDA-Public Use
  Company Number: US-ENDO PHARMACEUTICALS INC-2020-006252

PATIENT
  Sex: Female

DRUGS (1)
  1. PERPHENAZINE. [Suspect]
     Active Substance: PERPHENAZINE
     Indication: BLOOD DISORDER
     Dosage: 16 MG, BID
     Route: 065

REACTIONS (5)
  - Ill-defined disorder [Not Recovered/Not Resolved]
  - Pain [Not Recovered/Not Resolved]
  - Muscle twitching [Not Recovered/Not Resolved]
  - Chapped lips [Not Recovered/Not Resolved]
  - Off label use [Not Recovered/Not Resolved]

NARRATIVE: CASE EVENT DATE: 202008
